FAERS Safety Report 7670689 (Version 2)
Quarter: 2013Q1

REPORT INFORMATION
  Report Type: Spontaneous
  Country: FR (occurrence: FR)
  Receive Date: 20101116
  Receipt Date: 20130221
  Transmission Date: 20140127
  Serious: Yes (Hospitalization)
  Sender: FDA-Public Use
  Company Number: FR-AMGEN-FRASP2010003202

PATIENT
  Age: 59 Year
  Sex: Male
  Weight: 78 kg

DRUGS (8)
  1. ENBREL [Suspect]
     Indication: ANKYLOSING SPONDYLITIS
     Dosage: 50 MG, QWK
     Route: 058
     Dates: start: 200904, end: 201002
  2. INFLUVAC [Suspect]
     Indication: IMMUNISATION
     Dosage: 1 DF, QD
     Dates: start: 20091103, end: 20091103
  3. DIAMICRON [Concomitant]
     Dosage: 30 MG, QD
  4. MAGNE-B6                           /00869101/ [Concomitant]
     Dosage: 2 DOSES TOTAL DAILY
  5. TOPALGIC                           /00599202/ [Concomitant]
     Dosage: 200 MG TOTAL DAILY
  6. OMEPRAZOLE [Concomitant]
     Dosage: 20 MG, QD
  7. CELEBREX [Concomitant]
     Indication: ANKYLOSING SPONDYLITIS
     Dosage: 400 MG TOTAL DAILY
     Dates: start: 2009, end: 2010
  8. ACTOS [Concomitant]
     Dosage: 15 MG, QD

REACTIONS (5)
  - Extrapyramidal disorder [Not Recovered/Not Resolved]
  - Night sweats [Unknown]
  - Asthenia [Unknown]
  - Weight decreased [Unknown]
  - Anxiety [Unknown]
